FAERS Safety Report 6683219-9 (Version None)
Quarter: 2010Q2

REPORT INFORMATION
  Report Type: 
  Country: None (occurrence: None)
  Receive Date: 20100415
  Receipt Date: 20100405
  Transmission Date: 20101027
  Serious: Yes (Other)
  Sender: FDA-Public Use
  Company Number: FR-GENENTECH-300268

PATIENT

DRUGS (1)
  1. RITUXIMAB [Suspect]
     Indication: B-CELL LYMPHOMA
     Dosage: 375 MG/M2, UNK
     Route: 065

REACTIONS (6)
  - ACUTE MYELOID LEUKAEMIA [None]
  - BREAST CANCER [None]
  - LUNG NEOPLASM MALIGNANT [None]
  - MALIGNANT MELANOMA [None]
  - NEUTROPENIA [None]
  - RECTAL CANCER [None]
